FAERS Safety Report 26140461 (Version 1)
Quarter: 2025Q4

REPORT INFORMATION
  Report Type: Spontaneous
  Country: EU (occurrence: EU)
  Receive Date: 20251210
  Receipt Date: 20251210
  Transmission Date: 20260117
  Serious: Yes (Hospitalization)
  Sender: FERRING
  Company Number: EU-FERRINGPH-2024FE00608

PATIENT

DRUGS (4)
  1. MINIRIN [Suspect]
     Active Substance: DESMOPRESSIN ACETATE
     Indication: Diabetes insipidus
     Dosage: 2 DOSAGE FORM, DAILY (1 SPRAY IN THE MORNING, 1 SPRAY IN THE EVENING)
     Route: 065
     Dates: start: 1990, end: 2020
  2. DESMOPRESSIN ACETATE [Suspect]
     Active Substance: DESMOPRESSIN ACETATE
     Indication: Diabetes insipidus
     Dosage: UNK
     Route: 048
     Dates: start: 2021, end: 2021
  3. HYDROCORTISONE [Concomitant]
     Active Substance: HYDROCORTISONE
     Indication: Adrenal insufficiency
     Dosage: UNK
     Route: 065
  4. LEVOTHYROXINE [Concomitant]
     Active Substance: LEVOTHYROXINE
     Indication: Adrenal insufficiency
     Dosage: UNK
     Route: 065

REACTIONS (4)
  - Epistaxis [Recovered/Resolved]
  - Eye pain [Recovered/Resolved]
  - Lip dry [Recovered/Resolved]
  - Product availability issue [Unknown]

NARRATIVE: CASE EVENT DATE: 19900101
